FAERS Safety Report 8132787-9 (Version None)
Quarter: 2012Q1

REPORT INFORMATION
  Report Type: 
  Country: None (occurrence: None)
  Receive Date: 20120213
  Receipt Date: 20120207
  Transmission Date: 20120608
  Serious: Yes (Life-Threatening)
  Sender: FDA-Public Use
  Company Number: JP-MERCK-1202USA01050

PATIENT
  Age: 74 Year
  Sex: Male

DRUGS (5)
  1. JANUVIA [Suspect]
     Indication: DIABETES MELLITUS
     Route: 048
     Dates: start: 20111214
  2. VERAPAMIL HCL [Concomitant]
     Route: 048
  3. PLETAL [Concomitant]
     Route: 048
  4. EPALRESTAT [Concomitant]
     Route: 048
  5. CARVEDILOL [Concomitant]
     Route: 048

REACTIONS (1)
  - INTERSTITIAL LUNG DISEASE [None]
